FAERS Safety Report 9921800 (Version 2)
Quarter: 2014Q2

REPORT INFORMATION
  Report Type: Spontaneous
  Country: US (occurrence: US)
  Receive Date: 20140225
  Receipt Date: 20140409
  Transmission Date: 20141212
  Serious: Yes (Other)
  Sender: FDA-Public Use
  Company Number: US-PFIZER INC-2014050812

PATIENT
  Age: 6 Year
  Sex: Male
  Weight: 21.31 kg

DRUGS (3)
  1. XALATAN [Suspect]
     Indication: GLAUCOMA
     Dosage: 1 GTT, 1X/DAY
     Route: 047
  2. COSOPT [Suspect]
     Indication: GLAUCOMA
     Dosage: 1 GTT, 2X/DAY
     Route: 047
  3. MIRALAX [Concomitant]
     Indication: CONSTIPATION
     Dosage: UNK (ABOUT 3 QUARTERS)

REACTIONS (1)
  - Intraocular pressure increased [Unknown]
